FAERS Safety Report 6474737-7 (Version None)
Quarter: 2009Q4

REPORT INFORMATION
  Report Type: 
  Country: None (occurrence: None)
  Receive Date: 20091204
  Receipt Date: 20091130
  Transmission Date: 20100525
  Serious: Yes (Other)
  Sender: FDA-Public Use
  Company Number: B0609818A

PATIENT
  Age: 61 Year
  Sex: Male

DRUGS (11)
  1. ARIXTRA [Suspect]
     Indication: DRUG USE FOR UNKNOWN INDICATION
     Dosage: 2.5MG PER DAY
     Route: 058
     Dates: start: 20090728, end: 20090921
  2. AUGMENTIN '125' [Concomitant]
     Route: 065
  3. CITALOPRAM HYDROBROMIDE [Concomitant]
     Route: 065
  4. IMOVANE [Concomitant]
     Route: 065
  5. NOZINAN [Concomitant]
     Route: 065
  6. LEXOMIL [Concomitant]
     Route: 065
  7. ALUMINUM HYDROXIDE AND MAGNESIUM TRISILICATE [Concomitant]
     Route: 065
  8. NEXIUM [Concomitant]
     Route: 065
  9. VOLTAREN [Concomitant]
     Route: 065
  10. BRICANYL [Concomitant]
     Route: 055
  11. DOLIPRANE [Concomitant]
     Route: 065

REACTIONS (2)
  - INCORRECT DRUG ADMINISTRATION DURATION [None]
  - THROMBOCYTOPENIA [None]
